FAERS Safety Report 21047019 (Version 2)
Quarter: 2023Q4

REPORT INFORMATION
  Report Type: Spontaneous
  Country: US (occurrence: US)
  Receive Date: 20220706
  Receipt Date: 20231006
  Transmission Date: 20240110
  Serious: Yes (Other)
  Sender: FDA-Public Use
  Company Number: US-BAYER-2022A089182

PATIENT

DRUGS (1)
  1. ULTRAVIST [Suspect]
     Active Substance: IOPROMIDE
     Dosage: UNK UNK, ONCE
     Route: 065

REACTIONS (1)
  - Contrast media reaction [Unknown]

NARRATIVE: CASE EVENT DATE: 20220624
